FAERS Safety Report 16994650 (Version 2)
Quarter: 2019Q4

REPORT INFORMATION
  Report Type: Spontaneous
  Country: JP (occurrence: JP)
  Receive Date: 20191105
  Receipt Date: 20191212
  Transmission Date: 20200122
  Serious: Yes (Other)
  Sender: FDA-Public Use
  Company Number: JP-MYLANLABS-2019M1103561

PATIENT
  Age: 78 Year
  Sex: Male

DRUGS (3)
  1. VANCOMYCIN [Suspect]
     Active Substance: VANCOMYCIN
     Indication: PRODUCT USED FOR UNKNOWN INDICATION
     Dosage: 1 GRAM, BID
     Route: 065
     Dates: start: 20190905
  2. TAZOPIPE [Suspect]
     Active Substance: PIPERACILLIN SODIUM\TAZOBACTAM SODIUM
     Indication: PRODUCT USED FOR UNKNOWN INDICATION
     Dosage: 4.5 GRAM, BID
     Route: 065
     Dates: start: 20190903
  3. PRODIF [Suspect]
     Active Substance: FOSFLUCONAZOLE
     Indication: SYSTEMIC MYCOSIS
     Dosage: 400 MILLIGRAM, QD
     Route: 042
     Dates: start: 20190907, end: 20190927

REACTIONS (3)
  - Liver disorder [Recovered/Resolved]
  - Candida infection [Unknown]
  - Inappropriate schedule of product administration [Unknown]

NARRATIVE: CASE EVENT DATE: 20190903
